FAERS Safety Report 4916522-0 (Version None)
Quarter: 2006Q1

REPORT INFORMATION
  Report Type: 
  Country: None (occurrence: None)
  Receive Date: 20060220
  Receipt Date: 20060209
  Transmission Date: 20060701
  Serious: Yes (Other)
  Sender: FDA-Public Use
  Company Number: PHBS2006ES02192

PATIENT
  Sex: Female

DRUGS (10)
  1. ZOMETA [Suspect]
     Indication: MULTIPLE MYELOMA
     Route: 065
     Dates: start: 20040916, end: 20050825
  2. CALCIUM SANDOZ FORTE D [Concomitant]
  3. EPREX [Concomitant]
  4. VINCRISTINE [Concomitant]
  5. CARMUSTIN BCNU [Concomitant]
  6. CYCLOPHOSPHAMIDE [Concomitant]
  7. MELPHALAN [Concomitant]
  8. PREDNISONE [Concomitant]
  9. ADRIAMYCIN PFS [Concomitant]
  10. DEXAMETHASONE TAB [Concomitant]

REACTIONS (2)
  - GINGIVAL ATROPHY [None]
  - SURGERY [None]
